FAERS Safety Report 4359503-0 (Version None)
Quarter: 2004Q2

REPORT INFORMATION
  Report Type: 
  Country: None (occurrence: None)
  Receive Date: 20040511
  Receipt Date: 20040429
  Transmission Date: 20050107
  Serious: Yes (Hospitalization, Other)
  Sender: FDA-Public Use
  Company Number: REL-RIR-121

PATIENT
  Age: 82 Year
  Sex: Male

DRUGS (3)
  1. RYTHMOL [Suspect]
     Indication: ATRIAL FIBRILLATION
  2. TRETINOIN [Suspect]
     Indication: LEUKAEMIA RECURRENT
  3. CYTARABINE [Suspect]
     Indication: LEUKAEMIA RECURRENT

REACTIONS (9)
  - ACUTE PULMONARY OEDEMA [None]
  - BUNDLE BRANCH BLOCK LEFT [None]
  - CONDUCTION DISORDER [None]
  - DRUG INTERACTION [None]
  - ELECTROCARDIOGRAM ABNORMAL [None]
  - ELECTROCARDIOGRAM QRS COMPLEX PROLONGED [None]
  - LEUKAEMIA RECURRENT [None]
  - QRS AXIS ABNORMAL [None]
  - SUPRAVENTRICULAR EXTRASYSTOLES [None]
